FAERS Safety Report 14819835 (Version 1)
Quarter: 2018Q2

REPORT INFORMATION
  Report Type: Report from Study
  Country: US (occurrence: US)
  Receive Date: 20180427
  Receipt Date: 20180427
  Transmission Date: 20180711
  Serious: Yes (Hospitalization, Other)
  Sender: FDA-Public Use
  Company Number: US-JNJFOC-20180431714

PATIENT
  Age: 91 Year
  Sex: Male

DRUGS (1)
  1. IMBRUVICA [Suspect]
     Active Substance: IBRUTINIB
     Indication: CHRONIC LYMPHOCYTIC LEUKAEMIA
     Route: 048
     Dates: start: 20170510, end: 20170911

REACTIONS (6)
  - Platelet count abnormal [Unknown]
  - Drug ineffective [Unknown]
  - Dyspnoea [Not Recovered/Not Resolved]
  - Drug dose omission [Unknown]
  - Pulmonary oedema [Unknown]
  - Lung disorder [Unknown]

NARRATIVE: CASE EVENT DATE: 201804
